FAERS Safety Report 20751266 (Version 1)
Quarter: 2022Q2

REPORT INFORMATION
  Report Type: Spontaneous
  Country: CA (occurrence: CA)
  Receive Date: 20220426
  Receipt Date: 20220426
  Transmission Date: 20220720
  Serious: Yes (Life-Threatening, Hospitalization)
  Sender: FDA-Public Use
  Company Number: CA-TEVA-2022-CA-2029419

PATIENT
  Age: 63 Year
  Sex: Female

DRUGS (1)
  1. NAPROXEN [Suspect]
     Active Substance: NAPROXEN
     Route: 048

REACTIONS (3)
  - Endotracheal intubation [Unknown]
  - Haemostasis [Unknown]
  - Tonsillar haemorrhage [Unknown]
